FAERS Safety Report 8994493 (Version 1)
Quarter: 2012Q4

REPORT INFORMATION
  Report Type: Spontaneous
  Country: US (occurrence: None)
  Receive Date: 20121228
  Receipt Date: 20121228
  Transmission Date: 20130627
  Serious: Yes (Hospitalization)
  Sender: FDA-Public Use
  Company Number: None

PATIENT
  Age: 37 Year
  Sex: Female
  Weight: 80.9 kg

DRUGS (1)
  1. KINERET [Suspect]
     Indication: BEHCET^S DISEASE
     Dosage: 1.2mg/kg/day daily SC
     Route: 058

REACTIONS (8)
  - Diarrhoea [None]
  - Nausea [None]
  - Abdominal pain [None]
  - Oropharyngeal pain [None]
  - Influenza like illness [None]
  - Dehydration [None]
  - Electrolyte imbalance [None]
  - Large intestine polyp [None]
